FAERS Safety Report 16856966 (Version 1)
Quarter: 2019Q3

REPORT INFORMATION
  Report Type: Spontaneous
  Country: US (occurrence: US)
  Receive Date: 20190926
  Receipt Date: 20190926
  Transmission Date: 20191005
  Serious: No
  Sender: FDA-Public Use
  Company Number: US-FOUNDATIONCONSUMERHC-2019-US-012507

PATIENT
  Age: 33 Year
  Sex: Female
  Weight: 59.87 kg

DRUGS (6)
  1. PLAN B ONE-STEP [Suspect]
     Active Substance: LEVONORGESTREL
     Indication: POST COITAL CONTRACEPTION
     Dosage: 1.5 MG
     Route: 048
     Dates: start: 20190624, end: 20190624
  2. BIOTIN [Concomitant]
     Active Substance: BIOTIN
  3. FISH OIL [Concomitant]
     Active Substance: FISH OIL
  4. HAIR MULTIVITAMIN [Concomitant]
  5. AMINO ACIDS [Concomitant]
     Active Substance: AMINO ACIDS
  6. VITAMIN C [Concomitant]
     Active Substance: ASCORBIC ACID

REACTIONS (3)
  - Vaginal haemorrhage [Not Recovered/Not Resolved]
  - Fatigue [Not Recovered/Not Resolved]
  - Breast swelling [Not Recovered/Not Resolved]

NARRATIVE: CASE EVENT DATE: 20190627
